FAERS Safety Report 4417085-9 (Version None)
Quarter: 2004Q2

REPORT INFORMATION
  Report Type: 
  Country: None (occurrence: None)
  Receive Date: 20040628
  Receipt Date: 20040316
  Transmission Date: 20050107
  Serious: No
  Sender: FDA-Public Use
  Company Number: KII-2004-0009217

PATIENT
  Age: 38 Year
  Sex: Female

DRUGS (2)
  1. SPECTRACEF [Suspect]
     Indication: SKIN INFECTION
     Dosage: 200 MG BID
  2. SYNTHROID [Concomitant]

REACTIONS (4)
  - ANTINUCLEAR ANTIBODY POSITIVE [None]
  - CONDITION AGGRAVATED [None]
  - NAIL INFECTION [None]
  - PERIPHERAL COLDNESS [None]
